FAERS Safety Report 23560193 (Version 2)
Quarter: 2024Q2

REPORT INFORMATION
  Report Type: Spontaneous
  Country: CA (occurrence: CA)
  Receive Date: 20240223
  Receipt Date: 20240402
  Transmission Date: 20240716
  Serious: Yes (Other)
  Sender: FDA-Public Use
  Company Number: CA-PFIZER INC-202400047605

PATIENT
  Age: 74 Year
  Sex: Male
  Weight: 61 kg

DRUGS (5)
  1. RUXIENCE [Suspect]
     Active Substance: RITUXIMAB-PVVR
     Indication: Immune thrombocytopenia
     Dosage: 375 MG/M2, WEEKLY
     Route: 042
  2. LUSPATERCEPT [Suspect]
     Active Substance: LUSPATERCEPT
     Dosage: UNK
  3. VIDAZA [Suspect]
     Active Substance: AZACITIDINE
     Indication: Myelodysplastic syndrome
     Dosage: UNK
  4. ASPIRIN [Concomitant]
     Active Substance: ASPIRIN
     Dosage: UNK
  5. DEFERASIROX [Concomitant]
     Active Substance: DEFERASIROX
     Indication: Iron overload
     Dosage: UNK

REACTIONS (4)
  - Haematological infection [Unknown]
  - Pulmonary toxicity [Unknown]
  - Therapeutic product effect incomplete [Unknown]
  - Off label use [Unknown]
